FAERS Safety Report 24598659 (Version 1)
Quarter: 2024Q4

REPORT INFORMATION
  Report Type: Spontaneous
  Country: US (occurrence: US)
  Receive Date: 20241110
  Receipt Date: 20241110
  Transmission Date: 20250114
  Serious: No
  Sender: SANOFI AVENTIS
  Company Number: US-SANOFI-02272611

PATIENT
  Age: 89 Year
  Sex: Male

DRUGS (1)
  1. ADMELOG [Suspect]
     Active Substance: INSULIN LISPRO
     Indication: Product used for unknown indication
     Dosage: 20 IU, AC
     Route: 065

REACTIONS (2)
  - Blood glucose increased [Unknown]
  - Drug ineffective [Unknown]
